FAERS Safety Report 4680476-5 (Version None)
Quarter: 2005Q2

REPORT INFORMATION
  Report Type: 
  Country: None (occurrence: None)
  Receive Date: 20050602
  Receipt Date: 20050301
  Transmission Date: 20051028
  Serious: Yes (Other)
  Sender: FDA-Public Use
  Company Number: DE-MERCK-0503DEU00018

PATIENT
  Age: 71 Year
  Sex: Female
  Weight: 72 kg

DRUGS (2)
  1. VIOXX [Suspect]
     Indication: POLYARTHRITIS
     Route: 048
     Dates: start: 19980101, end: 20040901
  2. VIOXX [Suspect]
     Indication: SPINAL OSTEOARTHRITIS
     Route: 048
     Dates: start: 19980101, end: 20040901

REACTIONS (8)
  - APHASIA [None]
  - ATRIAL FIBRILLATION [None]
  - BLOOD PRESSURE INCREASED [None]
  - CAROTID ARTERY DISEASE [None]
  - CAROTID ARTERY STENOSIS [None]
  - CEREBROVASCULAR ACCIDENT [None]
  - HEART RATE DECREASED [None]
  - SINUS ARRHYTHMIA [None]
